FAERS Safety Report 16656028 (Version 3)
Quarter: 2019Q3

REPORT INFORMATION
  Report Type: Report from Study
  Country: US (occurrence: US)
  Receive Date: 20190801
  Receipt Date: 20190821
  Transmission Date: 20191004
  Serious: Yes (Other)
  Sender: FDA-Public Use
  Company Number: US-BAYER-2019-137175

PATIENT
  Age: 62 Year
  Sex: Male

DRUGS (2)
  1. STIVARGA [Suspect]
     Active Substance: REGORAFENIB
     Indication: RECTOSIGMOID CANCER
     Dosage: 80 MG DAILY WITH A LOW FAT BREAKFAST
     Route: 048
     Dates: start: 201907, end: 2019
  2. STIVARGA [Suspect]
     Active Substance: REGORAFENIB
     Indication: RECTOSIGMOID CANCER
     Dosage: 160 MG DAILY WITH A LOW FAT BREAKFAST FOR 21 DAYS OF 28 DAY CYCLE
     Route: 048
     Dates: start: 20190704, end: 201907

REACTIONS (9)
  - Neuropathy peripheral [Not Recovered/Not Resolved]
  - Blister [None]
  - Gait inability [None]
  - Diarrhoea [Unknown]
  - Blood potassium decreased [Unknown]
  - Adverse event [Unknown]
  - Adverse drug reaction [None]
  - Gait disturbance [Unknown]
  - Pain in extremity [None]

NARRATIVE: CASE EVENT DATE: 201907
